FAERS Safety Report 7084362-5 (Version None)
Quarter: 2010Q4

REPORT INFORMATION
  Report Type: 
  Country: None (occurrence: None)
  Receive Date: 20101104
  Receipt Date: 20101101
  Transmission Date: 20110411
  Serious: Yes (Hospitalization, Other)
  Sender: FDA-Public Use
  Company Number: US-PFIZER INC-2010091892

PATIENT
  Sex: Female

DRUGS (3)
  1. CHANTIX [Suspect]
     Indication: SMOKING CESSATION THERAPY
     Dosage: UNK
     Dates: start: 20090616, end: 20090628
  2. DEXAMPHETAMINE [Concomitant]
     Indication: ATTENTION DEFICIT/HYPERACTIVITY DISORDER
     Dosage: UNK
     Dates: start: 20060215, end: 20100605
  3. ACYCLOVIR SODIUM [Concomitant]
     Indication: BLISTER
     Dosage: 400 MG, UNK
     Dates: start: 20010123, end: 20100405

REACTIONS (9)
  - ABNORMAL DREAMS [None]
  - AMNESIA [None]
  - CONVULSION [None]
  - FATIGUE [None]
  - HEADACHE [None]
  - INTENTIONAL OVERDOSE [None]
  - NAUSEA [None]
  - PALPITATIONS [None]
  - SUICIDE ATTEMPT [None]
